FAERS Safety Report 25899633 (Version 1)
Quarter: 2025Q4

REPORT INFORMATION
  Report Type: Spontaneous
  Country: GB (occurrence: GB)
  Receive Date: 20251009
  Receipt Date: 20251009
  Transmission Date: 20260118
  Serious: Yes (Disabling, Other)
  Sender: TORRENT PHARMA INC.
  Company Number: None

PATIENT
  Age: 73 Year
  Sex: Female
  Weight: 44 kg

DRUGS (3)
  1. CLOPIDOGREL [Suspect]
     Active Substance: CLOPIDOGREL BISULFATE
     Indication: Myocardial infarction
     Route: 065
  2. BISOPROLOL [Concomitant]
     Active Substance: BISOPROLOL
     Indication: Myocardial infarction
     Dosage: UNKNOWN
     Route: 065
     Dates: start: 2022
  3. PANTOPRAZOLE [Concomitant]
     Active Substance: PANTOPRAZOLE
     Indication: Myocardial infarction
     Dosage: UNKNOWN
     Route: 065
     Dates: start: 2022

REACTIONS (5)
  - Blood glucose decreased [Not Recovered/Not Resolved]
  - Dyspepsia [Unknown]
  - Dizziness [Unknown]
  - Abdominal pain [Unknown]
  - Loss of personal independence in daily activities [Unknown]

NARRATIVE: CASE EVENT DATE: 20250801
